FAERS Safety Report 8001041-8 (Version None)
Quarter: 2011Q4

REPORT INFORMATION
  Report Type: 
  Country: None (occurrence: None)
  Receive Date: 20111222
  Receipt Date: 20110808
  Transmission Date: 20120403
  Serious: No
  Sender: FDA-Public Use
  Company Number: US-GLAXOSMITHKLINE-A0940576A

PATIENT
  Sex: Female

DRUGS (3)
  1. FLONASE [Suspect]
     Route: 045
     Dates: start: 20070101
  2. FLUNISOLIDE [Suspect]
     Route: 045
  3. FLUNISOLIDE [Suspect]
     Route: 045

REACTIONS (5)
  - EAR INFECTION VIRAL [None]
  - IMPAIRED WORK ABILITY [None]
  - INJURY [None]
  - VOMITING [None]
  - BALANCE DISORDER [None]
